FAERS Safety Report 18603831 (Version 4)
Quarter: 2021Q1

REPORT INFORMATION
  Report Type: Spontaneous
  Country: US (occurrence: US)
  Receive Date: 20201211
  Receipt Date: 20210117
  Transmission Date: 20210419
  Serious: Yes (Other)
  Sender: FDA-Public Use
  Company Number: US-TEVA-2020-US-1857628

PATIENT
  Age: 84 Year
  Sex: Female

DRUGS (1)
  1. CLONIDINE TEVA [Suspect]
     Active Substance: CLONIDINE
     Indication: HYPERTENSION
     Dosage: .2 MILLIGRAM DAILY; SINCE 2 YEARS/0.2 MG/DAY FOR 7 DAYS
     Route: 062
     Dates: start: 2018

REACTIONS (3)
  - Blood pressure increased [Unknown]
  - Blood pressure inadequately controlled [Recovered/Resolved]
  - Therapeutic product effect incomplete [Unknown]

NARRATIVE: CASE EVENT DATE: 202011
